FAERS Safety Report 17224298 (Version 1)
Quarter: 2020Q1

REPORT INFORMATION
  Report Type: Other
  Country: FR (occurrence: FR)
  Receive Date: 20200102
  Receipt Date: 20200102
  Transmission Date: 20200409
  Serious: Yes (Hospitalization, Other)
  Sender: FDA-Public Use
  Company Number: FR-VALIDUS PHARMACEUTICALS LLC-FR-2019VAL000912

PATIENT

DRUGS (2)
  1. CLAFORAN [Suspect]
     Active Substance: CEFOTAXIME SODIUM
     Indication: NEUTROPENIA
     Dosage: 3 G, UNK
     Route: 042
     Dates: start: 20181202, end: 20181205
  2. VALACICLOVIR [Suspect]
     Active Substance: VALACYCLOVIR HYDROCHLORIDE
     Indication: OPHTHALMIC HERPES ZOSTER
     Dosage: 3000 MG, UNK
     Route: 048
     Dates: start: 20181204, end: 20181211

REACTIONS (1)
  - Toxic skin eruption [Recovered/Resolved]

NARRATIVE: CASE EVENT DATE: 20181205
